FAERS Safety Report 10458911 (Version 1)
Quarter: 2014Q3

REPORT INFORMATION
  Report Type: Spontaneous
  Country: IN (occurrence: IN)
  Receive Date: 20140917
  Receipt Date: 20140917
  Transmission Date: 20150326
  Serious: Yes (Other)
  Sender: FDA-Public Use
  Company Number: IN-ASTRAZENECA-2014SE67533

PATIENT
  Age: 52 Year
  Sex: Female
  Weight: 61 kg

DRUGS (11)
  1. DEXAMETHASONE. [Suspect]
     Active Substance: DEXAMETHASONE
  2. TRAMADOL [Suspect]
     Active Substance: TRAMADOL
     Indication: PERIOPERATIVE ANALGESIA
  3. PARACETAMOL [Suspect]
     Active Substance: ACETAMINOPHEN
     Indication: PERIOPERATIVE ANALGESIA
  4. GLYCOPYRROLATE. [Suspect]
     Active Substance: GLYCOPYRROLATE
     Indication: NEUROMUSCULAR BLOCKADE REVERSAL
  5. MANNITOL. [Suspect]
     Active Substance: MANNITOL
  6. ISOFLURANE. [Suspect]
     Active Substance: ISOFLURANE
     Indication: MAINTENANCE OF ANAESTHESIA
     Dosage: 1  1.5 VOL%
  7. PROPOFOL. [Suspect]
     Active Substance: PROPOFOL
     Indication: GENERAL ANAESTHESIA
     Route: 042
  8. ATRACURIUM [Suspect]
     Active Substance: ATRACURIUM
     Indication: ENDOTRACHEAL INTUBATION
     Route: 042
  9. FENTANYL. [Suspect]
     Active Substance: FENTANYL
     Indication: PERIOPERATIVE ANALGESIA
  10. CEFTRIAXONE. [Suspect]
     Active Substance: CEFTRIAXONE
  11. PHENYTOIN. [Suspect]
     Active Substance: PHENYTOIN

REACTIONS (2)
  - Ketosis [Recovered/Resolved]
  - Hyperglycaemia [Recovered/Resolved]
